FAERS Safety Report 23860469 (Version 1)
Quarter: 2024Q2

REPORT INFORMATION
  Report Type: Spontaneous
  Country: US (occurrence: US)
  Receive Date: 20240516
  Receipt Date: 20240516
  Transmission Date: 20240715
  Serious: Yes (Other)
  Sender: FDA-Public Use
  Company Number: US-AVET LIFESCIENCES LTD-2024-AVET-000155

PATIENT
  Age: 67 Year
  Sex: Male

DRUGS (4)
  1. TACROLIMUS [Suspect]
     Active Substance: TACROLIMUS
     Indication: Immunosuppression
     Dosage: UNK
     Route: 065
  2. BELATACEPT [Concomitant]
     Active Substance: BELATACEPT
     Indication: Immunosuppression
     Dosage: UNK
  3. MYCOPHENOLIC ACID [Concomitant]
     Active Substance: MYCOPHENOLIC ACID
     Indication: Immunosuppression
     Dosage: UNK
  4. PREDNISONE [Concomitant]
     Active Substance: PREDNISONE
     Indication: Immunosuppression
     Dosage: UNK

REACTIONS (1)
  - Chronic kidney disease [Recovering/Resolving]
